FAERS Safety Report 5204607-3 (Version None)
Quarter: 2007Q1

REPORT INFORMATION
  Report Type: 
  Country: None (occurrence: None)
  Receive Date: 20070110
  Receipt Date: 20060523
  Transmission Date: 20070707
  Serious: No
  Sender: FDA-Public Use
  Company Number: US-BRISTOL-MYERS SQUIBB COMPANY-13386131

PATIENT
  Age: 14 Year

DRUGS (2)
  1. ARIPIPRAZOLE [Suspect]
  2. LITHIUM CARBONATE [Concomitant]
     Indication: MOOD SWINGS

REACTIONS (2)
  - MUSCLE SPASMS [None]
  - TIC [None]
